FAERS Safety Report 6657758-0 (Version None)
Quarter: 2010Q1

REPORT INFORMATION
  Report Type: 
  Country: None (occurrence: None)
  Receive Date: 20100326
  Receipt Date: 20100316
  Transmission Date: 20100710
  Serious: Yes (Other)
  Sender: FDA-Public Use
  Company Number: TPA2010A00671

PATIENT
  Age: 70 Year
  Sex: Female
  Weight: 113.3993 kg

DRUGS (3)
  1. ACTOS [Suspect]
     Indication: TYPE 2 DIABETES MELLITUS
     Dosage: 15 MG, 1 IN 1 D, PER ORAL
     Route: 048
     Dates: start: 20090101, end: 20100210
  2. PHENOBARBITAL TAB [Concomitant]
  3. GLUCOTROL [Concomitant]

REACTIONS (8)
  - EXTRASYSTOLES [None]
  - EYE PRURITUS [None]
  - HEADACHE [None]
  - INTRAOCULAR PRESSURE INCREASED [None]
  - JOINT SWELLING [None]
  - OEDEMA PERIPHERAL [None]
  - PAIN IN EXTREMITY [None]
  - WEIGHT INCREASED [None]
